FAERS Safety Report 4928965-X (Version None)
Quarter: 2006Q1

REPORT INFORMATION
  Report Type: 
  Country: None (occurrence: None)
  Receive Date: 20060301
  Receipt Date: 20060209
  Transmission Date: 20060701
  Serious: Yes (Hospitalization)
  Sender: FDA-Public Use
  Company Number: JP-JPN-A200600538

PATIENT
  Age: 77 Year
  Sex: Female
  Weight: 41 kg

DRUGS (13)
  1. VALTREX [Suspect]
     Indication: HERPES SIMPLEX
     Dosage: 500MG TWICE PER DAY
     Route: 048
     Dates: start: 20041018, end: 20041019
  2. ZYLORIC [Concomitant]
     Dosage: 100MG PER DAY
     Route: 048
  3. FUROSEMIDE [Concomitant]
     Indication: OLIGURIA
     Dosage: 40MG PER DAY
     Route: 048
  4. ACARDI [Concomitant]
     Indication: CARDIAC FAILURE
     Dosage: 2.5MG PER DAY
     Route: 048
  5. AMLODIN [Concomitant]
     Indication: HYPERTENSION
     Dosage: 5MG PER DAY
     Route: 048
  6. GASTER D [Concomitant]
     Indication: GASTRITIS
     Dosage: 20MG PER DAY
     Route: 048
  7. MICARDIS [Concomitant]
     Indication: HYPERTENSION
     Dosage: 40MG PER DAY
     Route: 048
  8. JUSO-JO [Concomitant]
     Indication: ACIDOSIS
     Dosage: 3G PER DAY
     Route: 048
  9. MUCOSTA [Concomitant]
     Indication: GASTRITIS
     Dosage: 300MG PER DAY
     Route: 048
  10. LIPITOR [Concomitant]
     Dosage: 10MG PER DAY
     Route: 048
  11. ONON [Concomitant]
     Indication: ASTHMA
     Dosage: 500MG PER DAY
     Route: 048
  12. ALFAROL [Concomitant]
     Indication: OSTEOPOROSIS
     Dosage: .5MCG PER DAY
     Route: 048
  13. RISUMIC [Concomitant]
     Indication: PROCEDURAL HYPERTENSION
     Dosage: 10MG PER DAY
     Route: 048

REACTIONS (2)
  - DISORIENTATION [None]
  - HALLUCINATION [None]
